FAERS Safety Report 6696281-4 (Version None)
Quarter: 2010Q2

REPORT INFORMATION
  Report Type: 
  Country: None (occurrence: None)
  Receive Date: 20100426
  Receipt Date: 20100323
  Transmission Date: 20101027
  Serious: Yes (Death, Other)
  Sender: FDA-Public Use
  Company Number: US-BAXTER-2010BH001882

PATIENT
  Age: 68 Year
  Sex: Female

DRUGS (50)
  1. HEPARIN SODIUM INJECTION [Suspect]
     Indication: HAEMATOMA EVACUATION
     Route: 065
     Dates: start: 20080109
  2. HEPARIN SODIUM INJECTION [Suspect]
     Indication: LARGE INTESTINE PERFORATION
     Route: 065
     Dates: start: 20080109
  3. HEPARIN SODIUM INJECTION [Suspect]
     Indication: INCISIONAL HERNIA REPAIR
     Route: 065
     Dates: start: 20080109
  4. HEPARIN SODIUM INJECTION [Suspect]
     Indication: ABDOMINAL WALL OPERATION
     Route: 065
     Dates: start: 20080109
  5. HEPARIN SODIUM INJECTION [Suspect]
     Route: 065
     Dates: start: 20080114
  6. HEPARIN SODIUM INJECTION [Suspect]
     Route: 065
     Dates: start: 20080114
  7. HEPARIN SODIUM INJECTION [Suspect]
     Route: 065
     Dates: start: 20080114
  8. HEPARIN SODIUM INJECTION [Suspect]
     Route: 065
     Dates: start: 20080114
  9. HEPARIN SODIUM INJECTION [Suspect]
     Route: 065
     Dates: start: 20080117
  10. HEPARIN SODIUM INJECTION [Suspect]
     Route: 065
     Dates: start: 20080117
  11. HEPARIN SODIUM INJECTION [Suspect]
     Route: 065
     Dates: start: 20080117
  12. HEPARIN SODIUM INJECTION [Suspect]
     Route: 065
     Dates: start: 20080117
  13. HEPARIN SODIUM INJECTION [Suspect]
     Route: 065
     Dates: start: 20080119
  14. HEPARIN SODIUM INJECTION [Suspect]
     Route: 065
     Dates: start: 20080119
  15. HEPARIN SODIUM INJECTION [Suspect]
     Route: 065
     Dates: start: 20080119
  16. HEPARIN SODIUM INJECTION [Suspect]
     Route: 065
     Dates: start: 20080119
  17. HEPARIN SODIUM INJECTION [Suspect]
     Route: 065
     Dates: start: 20080120
  18. HEPARIN SODIUM INJECTION [Suspect]
     Route: 065
     Dates: start: 20080120
  19. HEPARIN SODIUM INJECTION [Suspect]
     Route: 065
     Dates: start: 20080120
  20. HEPARIN SODIUM INJECTION [Suspect]
     Route: 065
     Dates: start: 20080120
  21. LISINOPRIL [Concomitant]
     Indication: DRUG USE FOR UNKNOWN INDICATION
     Route: 065
  22. LOVENOX [Concomitant]
     Indication: DRUG USE FOR UNKNOWN INDICATION
     Route: 065
  23. WARFARIN SODIUM [Concomitant]
     Indication: DRUG USE FOR UNKNOWN INDICATION
     Route: 065
  24. VESICARE [Concomitant]
     Indication: DRUG USE FOR UNKNOWN INDICATION
     Route: 065
  25. ALENDRONATE SODIUM [Concomitant]
     Indication: DRUG USE FOR UNKNOWN INDICATION
     Route: 065
  26. HYDROCORTISONE [Concomitant]
     Indication: DRUG USE FOR UNKNOWN INDICATION
     Route: 065
  27. LIPITOR [Concomitant]
     Indication: DRUG USE FOR UNKNOWN INDICATION
     Route: 065
  28. VITAMIN C [Concomitant]
     Indication: DRUG USE FOR UNKNOWN INDICATION
     Route: 065
  29. OSCAL [Concomitant]
     Indication: DRUG USE FOR UNKNOWN INDICATION
     Route: 065
  30. MULTI-VITAMINS [Concomitant]
     Indication: DRUG USE FOR UNKNOWN INDICATION
     Route: 065
  31. CLARITIN [Concomitant]
     Indication: DRUG USE FOR UNKNOWN INDICATION
     Route: 065
  32. CEFAZOLIN [Concomitant]
     Indication: DRUG USE FOR UNKNOWN INDICATION
     Route: 065
  33. LIDOCAINE [Concomitant]
     Indication: DRUG USE FOR UNKNOWN INDICATION
     Route: 065
  34. FENTANYL [Concomitant]
     Indication: DRUG USE FOR UNKNOWN INDICATION
     Route: 065
  35. SODIUM BICARBONATE [Concomitant]
     Indication: DRUG USE FOR UNKNOWN INDICATION
     Route: 065
  36. MIDAZOLAM HCL [Concomitant]
     Indication: DRUG USE FOR UNKNOWN INDICATION
     Route: 065
  37. SODIUM CHLORIDE [Concomitant]
     Indication: DRUG USE FOR UNKNOWN INDICATION
     Route: 065
  38. CALCIUM CHLORIDE ^BIOTIKA^ [Concomitant]
     Indication: DRUG USE FOR UNKNOWN INDICATION
     Route: 065
  39. DEXAMETHASONE [Concomitant]
     Indication: DRUG USE FOR UNKNOWN INDICATION
     Route: 065
  40. FLUCONAZOLE [Concomitant]
     Indication: DRUG USE FOR UNKNOWN INDICATION
     Route: 065
  41. FOLIC ACID [Concomitant]
     Indication: DRUG USE FOR UNKNOWN INDICATION
     Route: 065
  42. GLYCOPYRROLATE [Concomitant]
     Indication: DRUG USE FOR UNKNOWN INDICATION
     Route: 065
  43. NOREPINEPHRINE [Concomitant]
     Indication: DRUG USE FOR UNKNOWN INDICATION
     Route: 065
  44. MORPHINE [Concomitant]
     Indication: DRUG USE FOR UNKNOWN INDICATION
     Route: 065
  45. ALBUTEROL [Concomitant]
     Indication: DRUG USE FOR UNKNOWN INDICATION
     Route: 065
  46. SODIUM CHLORIDE [Concomitant]
     Route: 065
  47. HYDROMORPHONE HCL [Concomitant]
     Indication: DRUG USE FOR UNKNOWN INDICATION
     Route: 065
  48. PANTOPRAZOLE [Concomitant]
     Indication: DRUG USE FOR UNKNOWN INDICATION
     Route: 065
  49. NEOSTIGMINE [Concomitant]
     Indication: DRUG USE FOR UNKNOWN INDICATION
     Route: 065
  50. HYDROCORTISONE [Concomitant]
     Route: 065

REACTIONS (8)
  - DEEP VEIN THROMBOSIS [None]
  - HEPARIN-INDUCED THROMBOCYTOPENIA [None]
  - HYPOTENSION [None]
  - HYPOVOLAEMIC SHOCK [None]
  - LARGE INTESTINE PERFORATION [None]
  - MULTI-ORGAN FAILURE [None]
  - MUSCLE HAEMORRHAGE [None]
  - SEPTIC SHOCK [None]
